FAERS Safety Report 9580439 (Version 2)
Quarter: 2013Q4

REPORT INFORMATION
  Report Type: Report from Study
  Country: DE (occurrence: DE)
  Receive Date: 20131002
  Receipt Date: 20131002
  Transmission Date: 20140711
  Serious: Yes (Hospitalization)
  Sender: FDA-Public Use
  Company Number: DE-TEVA-396974USA

PATIENT
  Age: 69 Year
  Sex: Female

DRUGS (21)
  1. BENDAMUSTINE [Suspect]
     Indication: PLASMA CELL MYELOMA
     Dosage: REGIMEN #1
     Route: 042
     Dates: start: 20121024, end: 20121027
  2. BENDAMUSTINE [Suspect]
     Dosage: REGIMEN #2
     Route: 042
     Dates: start: 20121122
  3. BENDAMUSTINE [Suspect]
     Dosage: REGIMEN #3
     Route: 042
     Dates: start: 20121227
  4. PREDNISOLONE [Suspect]
     Indication: PLASMA CELL MYELOMA
     Dosage: REGIMEN #1
     Dates: start: 20121024
  5. VELCADE [Suspect]
     Indication: PLASMA CELL MYELOMA
     Dosage: REGIMEN #1
     Dates: start: 2013
  6. VELCADE [Suspect]
     Dosage: REGIMEN #2
     Dates: start: 20130326, end: 20130416
  7. VELCADE [Suspect]
     Dates: start: 20130430, end: 20130521
  8. VELCADE [Suspect]
     Dates: start: 20080707, end: 20080731
  9. REVLIMID [Suspect]
     Indication: PLASMA CELL MYELOMA
     Dates: start: 20130613, end: 20130704
  10. DEXAMETHASONE [Suspect]
     Indication: PLASMA CELL MYELOMA
     Dates: start: 2013, end: 2013
  11. DEXAMETHASONE [Suspect]
     Dates: start: 20080707, end: 20080731
  12. DEXAMETHASONE [Suspect]
     Dates: start: 20130613, end: 20130704
  13. ZOMETA [Concomitant]
     Dates: start: 20080516
  14. FLUCONAZOL [Concomitant]
     Dates: start: 20121024
  15. AVALOX [Concomitant]
     Dates: start: 20121116
  16. COTRIM [Concomitant]
     Dates: start: 20121221
  17. ACICLOVIR [Concomitant]
     Indication: CHEMOTHERAPY
     Dates: start: 20130116
  18. CIPROFLOXACIN [Concomitant]
     Indication: CHEMOTHERAPY
     Dates: start: 20130514
  19. DOXYCYCLINE [Concomitant]
     Indication: CHEMOTHERAPY
     Dates: start: 20130527
  20. ROCEPHIN [Concomitant]
     Dates: start: 20130619
  21. CLARITHROMYCIN [Concomitant]
     Dates: start: 20130619

REACTIONS (2)
  - Chronic obstructive pulmonary disease [Recovered/Resolved]
  - Pancytopenia [Recovering/Resolving]
